FAERS Safety Report 9994761 (Version 1)
Quarter: 2014Q1

REPORT INFORMATION
  Report Type: Spontaneous
  Country: CA (occurrence: CA)
  Receive Date: 20140311
  Receipt Date: 20140311
  Transmission Date: 20141002
  Serious: Yes (Other)
  Sender: FDA-Public Use
  Company Number: CA-BAYER-2014-032462

PATIENT
  Age: 26 Year
  Sex: Female

DRUGS (2)
  1. YASMIN 28 [Suspect]
     Indication: CONTRACEPTION
     Dosage: UNK
     Dates: start: 201001, end: 20121127
  2. YASMIN 28 [Suspect]
     Indication: POLYCYSTIC OVARIES

REACTIONS (8)
  - Deep vein thrombosis [None]
  - Vascular injury [None]
  - Skin discolouration [None]
  - Local swelling [None]
  - Fatigue [None]
  - Weight increased [None]
  - Anxiety [None]
  - Feeling abnormal [None]
